FAERS Safety Report 6370938-7 (Version None)
Quarter: 2009Q3

REPORT INFORMATION
  Report Type: 
  Country: None (occurrence: None)
  Receive Date: 20090923
  Receipt Date: 20070605
  Transmission Date: 20100115
  Serious: Yes (Other)
  Sender: FDA-Public Use
  Company Number: US-ASTRAZENECA-2006UW22811

PATIENT
  Age: 7054 Day
  Sex: Female
  Weight: 65.3 kg

DRUGS (8)
  1. SEROQUEL [Suspect]
     Indication: ABNORMAL BEHAVIOUR
     Dosage: 25-400 MG
     Route: 048
     Dates: start: 20010601
  2. GUANFACINE HYDROCHLORIDE [Concomitant]
     Route: 048
     Dates: start: 19990909
  3. DEPAKOTE [Concomitant]
     Dosage: 250-3000 MG
     Route: 048
     Dates: start: 19990709
  4. LEVOTHROID [Concomitant]
     Dosage: 112 MCG DAILY
     Route: 048
     Dates: start: 20030630
  5. LIPITOR [Concomitant]
     Route: 048
     Dates: start: 20050706
  6. AMARYL [Concomitant]
     Route: 048
     Dates: start: 20050706
  7. INDERAL [Concomitant]
     Route: 048
     Dates: start: 20030923
  8. LITHIUM [Concomitant]
     Dates: start: 20030923

REACTIONS (3)
  - DIABETES MELLITUS [None]
  - DIABETES MELLITUS INADEQUATE CONTROL [None]
  - TYPE 2 DIABETES MELLITUS [None]
